FAERS Safety Report 16073292 (Version 1)
Quarter: 2019Q1

REPORT INFORMATION
  Report Type: Spontaneous
  Country: CA (occurrence: CA)
  Receive Date: 20190314
  Receipt Date: 20190314
  Transmission Date: 20190418
  Serious: Yes (Other)
  Sender: FDA-Public Use
  Company Number: CA-PFIZER INC-2019111090

PATIENT
  Age: 50 Year
  Sex: Female
  Weight: 54 kg

DRUGS (4)
  1. SYNTHROID [Concomitant]
     Active Substance: LEVOTHYROXINE SODIUM
     Dosage: UNK
  2. VERAPAMIL HCL [Suspect]
     Active Substance: VERAPAMIL HYDROCHLORIDE
     Indication: VENTRICULAR TACHYCARDIA
     Dosage: 120 MG, 1X/DAY
     Route: 048
  3. ANDROCUR [Concomitant]
     Active Substance: CYPROTERONE ACETATE
     Dosage: UNK
  4. LOLO [Concomitant]
     Active Substance: ETHINYL ESTRADIOL\NORETHINDRONE ACETATE
     Dosage: UNK

REACTIONS (1)
  - Hepatitis [Recovered/Resolved]
